FAERS Safety Report 8114205-X (Version None)
Quarter: 2012Q1

REPORT INFORMATION
  Report Type: 
  Country: None (occurrence: None)
  Receive Date: 20120205
  Receipt Date: 20110719
  Transmission Date: 20120608
  Serious: No
  Sender: FDA-Public Use
  Company Number: US-ALLERGAN-1109752US

PATIENT
  Age: 78 Year
  Sex: Female
  Weight: 46.3 kg

DRUGS (4)
  1. PREDNISOLONE ACETATE [Suspect]
     Dosage: 2 GTT, QD
     Dates: start: 20110601
  2. XALATAN [Suspect]
     Indication: GLAUCOMA
     Dosage: UNK
     Dates: start: 19900101
  3. PREDNISOLONE ACETATE [Suspect]
     Indication: EYE INFLAMMATION
     Dosage: 2 GTT, TID
     Route: 047
     Dates: start: 20110601, end: 20110601
  4. PREDNISOLONE ACETATE [Suspect]
     Dosage: 2 GTT, BID
     Route: 047
     Dates: start: 20110601, end: 20110601

REACTIONS (1)
  - INTRAOCULAR PRESSURE INCREASED [None]
